FAERS Safety Report 5922291-8 (Version None)
Quarter: 2008Q3

REPORT INFORMATION
  Report Type: 
  Country: None (occurrence: None)
  Receive Date: 20080909
  Receipt Date: 20071204
  Transmission Date: 20090109
  Serious: Yes (Other)
  Sender: FDA-Public Use
  Company Number: 163-20785-07120273 (0)

PATIENT
  Age: 67 Year
  Sex: Male

DRUGS (19)
  1. THALOMID [Suspect]
     Indication: MULTIPLE MYELOMA
     Dosage: 150 MG, QD, ORAL
     Route: 048
     Dates: start: 20070916, end: 20071128
  2. DECADRON [Concomitant]
  3. ALLOPURINOL [Concomitant]
  4. ASCORBIC ACID [Concomitant]
  5. VITAMIN B12 [Concomitant]
  6. LOVENOX [Concomitant]
  7. LASIX [Concomitant]
  8. PLAQUENIL [Concomitant]
  9. IBUPROFEN [Concomitant]
  10. AVALIDE (KARVEA HCT) [Concomitant]
  11. LACTULOSE [Concomitant]
  12. LEVOXYL [Concomitant]
  13. SINGULAIR [Concomitant]
  14. PRILOSEC [Concomitant]
  15. POTASSIUM (POTASSIUM) [Concomitant]
  16. CALAN [Concomitant]
  17. VITAMIN E [Concomitant]
  18. COUMADIN [Concomitant]
  19. ASPIRIN [Concomitant]

REACTIONS (5)
  - ABDOMINAL DISTENSION [None]
  - CONSTIPATION [None]
  - DEEP VEIN THROMBOSIS [None]
  - FLATULENCE [None]
  - NEUROPATHY PERIPHERAL [None]
